FAERS Safety Report 11354541 (Version 1)
Quarter: 2015Q3

REPORT INFORMATION
  Report Type: Spontaneous
  Country: US (occurrence: US)
  Receive Date: 20150807
  Receipt Date: 20150807
  Transmission Date: 20151125
  Serious: No
  Sender: FDA-Public Use
  Company Number: US-JNJFOC-20141016436

PATIENT
  Age: 24 Year
  Sex: Male
  Weight: 76.2 kg

DRUGS (3)
  1. PROPECIA [Concomitant]
     Active Substance: FINASTERIDE
     Indication: ALOPECIA
     Route: 065
  2. MENS ROGAINE EXTRA STRENGTH [Suspect]
     Active Substance: MINOXIDIL
     Route: 061
  3. MENS ROGAINE EXTRA STRENGTH [Suspect]
     Active Substance: MINOXIDIL
     Indication: ALOPECIA
     Dosage: RECOMMENDED DOSAGE AT LEAST ONCE DAILY
     Route: 061

REACTIONS (8)
  - Eye swelling [Unknown]
  - Hair texture abnormal [Not Recovered/Not Resolved]
  - Skin irritation [Unknown]
  - Pruritus [Unknown]
  - Skin discolouration [Unknown]
  - Drug ineffective [Not Recovered/Not Resolved]
  - Wrong technique in product usage process [Unknown]
  - Alopecia [Not Recovered/Not Resolved]
